FAERS Safety Report 12466050 (Version 3)
Quarter: 2016Q4

REPORT INFORMATION
  Report Type: Spontaneous
  Country: US (occurrence: US)
  Receive Date: 20160614
  Receipt Date: 20161112
  Transmission Date: 20170207
  Serious: No
  Sender: FDA-Public Use
  Company Number: US-BRISTOL-MYERS SQUIBB COMPANY-BMS-2016-046479

PATIENT
  Age: 53 Year
  Sex: Female

DRUGS (1)
  1. SPRYCEL [Suspect]
     Active Substance: DASATINIB
     Indication: ACUTE LYMPHOCYTIC LEUKAEMIA
     Dosage: 100 MG, QD
     Route: 048
     Dates: start: 20160510

REACTIONS (7)
  - Nausea [Unknown]
  - Fatigue [Unknown]
  - Headache [Unknown]
  - Heart rate increased [Unknown]
  - Migraine [Unknown]
  - Upper respiratory tract infection [Recovered/Resolved]
  - Palpitations [Unknown]

NARRATIVE: CASE EVENT DATE: 20160523
